FAERS Safety Report 9470649 (Version 4)
Quarter: 2015Q2

REPORT INFORMATION
  Report Type: Spontaneous
  Country: US (occurrence: US)
  Receive Date: 20130822
  Receipt Date: 20150403
  Transmission Date: 20150821
  Serious: Yes (Congenital Anomaly, Other)
  Sender: FDA-Public Use
  Company Number: US-ELI_LILLY_AND_COMPANY-US201308005433

PATIENT
  Sex: Female

DRUGS (4)
  1. PROZAC [Suspect]
     Active Substance: FLUOXETINE HYDROCHLORIDE
     Indication: ANXIETY
     Dosage: 20 MG, UNKNOWN
     Route: 064
  2. ZANTAC [Concomitant]
     Active Substance: RANITIDINE HYDROCHLORIDE
     Dosage: UNK, UNKNOWN
     Route: 064
  3. PROZAC [Suspect]
     Active Substance: FLUOXETINE HYDROCHLORIDE
     Indication: DEPRESSION
     Dosage: 10 MG, UNKNOWN
     Route: 064
  4. COCAINE [Concomitant]
     Active Substance: COCAINE
     Route: 064

REACTIONS (9)
  - Dilatation ventricular [Not Recovered/Not Resolved]
  - Foetal exposure during pregnancy [Recovered/Resolved]
  - Tricuspid valve incompetence [Not Recovered/Not Resolved]
  - Pleural effusion [Unknown]
  - Pulmonary valve incompetence [Recovered/Resolved]
  - Premature baby [Recovered/Resolved]
  - Fallot^s tetralogy [Unknown]
  - Exposure during breast feeding [Unknown]
  - Mitral valve incompetence [Recovered/Resolved]
